FAERS Safety Report 7684866-8 (Version None)
Quarter: 2011Q3

REPORT INFORMATION
  Report Type: 
  Country: None (occurrence: None)
  Receive Date: 20110810
  Receipt Date: 20110726
  Transmission Date: 20111222
  Serious: Yes (Hospitalization)
  Sender: FDA-Public Use
  Company Number: DSA_47353_2011

PATIENT
  Sex: Female

DRUGS (5)
  1. AMPYRA [Suspect]
     Indication: GAIT DISTURBANCE
     Dates: start: 20101001, end: 20110601
  2. NATALIZUMAB [Concomitant]
  3. BUPROPION HYDROCHLORIDE [Suspect]
     Indication: DEPRESSION
     Dosage: (150 MG BID), (150 MG QD)
     Dates: end: 20110201
  4. BUPROPION HYDROCHLORIDE [Suspect]
     Indication: DEPRESSION
     Dosage: (150 MG BID), (150 MG QD)
     Dates: start: 20110201, end: 20110601
  5. TRAMADOL HCL [Suspect]
     Indication: PAIN
     Dosage: DF
     Dates: end: 20110201

REACTIONS (4)
  - DRUG INEFFECTIVE [None]
  - FALL [None]
  - LOSS OF CONSCIOUSNESS [None]
  - CONVULSION [None]
